FAERS Safety Report 6274467-0 (Version None)
Quarter: 2009Q3

REPORT INFORMATION
  Report Type: 
  Country: None (occurrence: None)
  Receive Date: 20090720
  Receipt Date: 20090708
  Transmission Date: 20100115
  Serious: Yes (Other)
  Sender: FDA-Public Use
  Company Number: PHHY2009BR28439

PATIENT
  Sex: Female

DRUGS (8)
  1. EXELON [Suspect]
     Dosage: UNK
     Route: 062
     Dates: start: 20080701
  2. EXELON [Suspect]
     Route: 048
  3. SOMAZINA [Concomitant]
  4. CARBOLITIUM [Concomitant]
  5. CITALOPRAM HYDROBROMIDE [Concomitant]
  6. FOLIC ACID [Concomitant]
     Indication: ANAEMIA
  7. ASCORBIC ACID [Concomitant]
  8. BISOLVON [Concomitant]

REACTIONS (3)
  - APATHY [None]
  - MENTAL IMPAIRMENT [None]
  - SPEECH DISORDER [None]
